FAERS Safety Report 7637413-0 (Version None)
Quarter: 2011Q3

REPORT INFORMATION
  Report Type: 
  Country: None (occurrence: None)
  Receive Date: 20110726
  Receipt Date: 20110725
  Transmission Date: 20111222
  Serious: No
  Sender: FDA-Public Use
  Company Number: US-PFIZER INC-2011168873

PATIENT
  Sex: Female
  Weight: 90.703 kg

DRUGS (3)
  1. VICODIN [Concomitant]
     Indication: BACK DISORDER
     Dosage: UNK
  2. ADVIL [Suspect]
     Indication: SINUS HEADACHE
  3. ADVIL [Suspect]
     Indication: HEADACHE
     Dosage: UNK, AS NEEDED
     Route: 048
     Dates: start: 20110401, end: 20110601

REACTIONS (1)
  - DRUG INEFFECTIVE [None]
